FAERS Safety Report 8120933-2 (Version None)
Quarter: 2012Q1

REPORT INFORMATION
  Report Type: 
  Country: None (occurrence: None)
  Receive Date: 20120208
  Receipt Date: 20120125
  Transmission Date: 20120608
  Serious: No
  Sender: FDA-Public Use
  Company Number: US-B.I. PHARMACEUTICALS,INC./RIDGEFIELD-2012-BP-01570BP

PATIENT
  Sex: Male

DRUGS (1)
  1. PRADAXA [Suspect]
     Indication: ATRIAL FIBRILLATION
     Dosage: 300 MG
     Route: 048
     Dates: start: 20110909, end: 20111101

REACTIONS (6)
  - SWELLING FACE [None]
  - FEELING ABNORMAL [None]
  - PRODUCTIVE COUGH [None]
  - WHEEZING [None]
  - COUGH [None]
  - BACK PAIN [None]
